FAERS Safety Report 8011587-4 (Version None)
Quarter: 2011Q4

REPORT INFORMATION
  Report Type: 
  Country: None (occurrence: None)
  Receive Date: 20111228
  Receipt Date: 20111216
  Transmission Date: 20120403
  Serious: Yes (Death, Disabling)
  Sender: FDA-Public Use
  Company Number: FR-WATSON-2011-21803

PATIENT
  Sex: Male

DRUGS (1)
  1. TRELSTAR [Suspect]
     Indication: PAEDOPHILIA
     Dosage: ONE INJECTION EVERY 3 MONTHS
     Route: 030
     Dates: start: 20110419

REACTIONS (2)
  - SCIATICA [None]
  - DEATH [None]
